FAERS Safety Report 10675465 (Version 1)
Quarter: 2014Q4

REPORT INFORMATION
  Report Type: Spontaneous
  Country: US (occurrence: US)
  Receive Date: 20141224
  Receipt Date: 20141224
  Transmission Date: 20150529
  Serious: No
  Sender: FDA-Public Use
  Company Number: US-SHIRE-US201409002

PATIENT
  Sex: Male
  Weight: 79.37 kg

DRUGS (3)
  1. PENTASA [Suspect]
     Active Substance: MESALAMINE
     Indication: CROHN^S DISEASE
     Dosage: UNK, 1X/DAY:QD, 8 PILLS PER DAY
     Route: 048
     Dates: start: 2014, end: 201412
  2. QUESTRAN [Concomitant]
     Active Substance: CHOLESTYRAMINE
     Indication: GASTROINTESTINAL MOTILITY DISORDER
     Dosage: 1 DF, 2X/DAY:BID, 1 PACKET BID WITH MEALS
     Route: 065
  3. ANTIHYPERTENSIVES [Concomitant]
     Active Substance: UNSPECIFIED INGREDIENT
     Indication: HYPERTENSION
     Dosage: UNK, UNKNOWN
     Route: 065
     Dates: start: 2013

REACTIONS (2)
  - No adverse event [Recovered/Resolved]
  - Product use issue [Recovered/Resolved]

NARRATIVE: CASE EVENT DATE: 2014
